FAERS Safety Report 6248667-X (Version None)
Quarter: 2009Q2

REPORT INFORMATION
  Report Type: 
  Country: None (occurrence: None)
  Receive Date: 20090624
  Receipt Date: 20090624
  Transmission Date: 20091009
  Serious: Yes (Life-Threatening)
  Sender: FDA-Public Use
  Company Number: None

PATIENT
  Age: 63 Year
  Sex: Male
  Weight: 82 kg

DRUGS (8)
  1. OLANZAPINE [Suspect]
     Indication: AGITATION
     Dosage: 10-15MG IM QHS
     Route: 030
     Dates: start: 20090508, end: 20090517
  2. OLANZAPINE [Suspect]
     Indication: DELIRIUM
     Dosage: 10-15MG IM QHS
     Route: 030
     Dates: start: 20090508, end: 20090517
  3. HEPARIN [Concomitant]
  4. FUROSEMIDE [Concomitant]
  5. INSULIN [Concomitant]
  6. METOPROLOL [Concomitant]
  7. ONDANSETRON [Concomitant]
  8. RANITIDINE [Concomitant]

REACTIONS (5)
  - BRADYCARDIA [None]
  - CARDIAC ARREST [None]
  - ELECTROCARDIOGRAM QT INTERVAL ABNORMAL [None]
  - EXTRASYSTOLES [None]
  - VENTRICULAR TACHYCARDIA [None]
